FAERS Safety Report 13212619 (Version 1)
Quarter: 2017Q1

REPORT INFORMATION
  Report Type: Spontaneous
  Country: US (occurrence: US)
  Receive Date: 20170210
  Receipt Date: 20170210
  Transmission Date: 20170428
  Serious: No
  Sender: FDA-Public Use
  Company Number: None

PATIENT
  Age: 47 Year
  Sex: Female
  Weight: 66.6 kg

DRUGS (8)
  1. ARMOUR THYROID [Concomitant]
     Active Substance: THYROID, PORCINE
  2. SIMVASTATIN. [Concomitant]
     Active Substance: SIMVASTATIN
  3. BIOTIN [Concomitant]
     Active Substance: BIOTIN
  4. SPIRONOLACTONE. [Concomitant]
     Active Substance: SPIRONOLACTONE
  5. ASPIRIN. [Concomitant]
     Active Substance: ASPIRIN
  6. NUTRAFOL VITAMIN [Concomitant]
  7. OTEZLA [Suspect]
     Active Substance: APREMILAST
     Indication: PSORIASIS
     Dosage: ?          QUANTITY:2 TABLET(S);?
     Route: 048
     Dates: start: 20170102, end: 20170210
  8. AG PRO VITAMIN [Concomitant]

REACTIONS (2)
  - Alopecia [None]
  - Back pain [None]

NARRATIVE: CASE EVENT DATE: 20170201
